FAERS Safety Report 9088071 (Version 1)
Quarter: 2013Q1

REPORT INFORMATION
  Report Type: Spontaneous
  Country: JP (occurrence: JP)
  Receive Date: 20130201
  Receipt Date: 20130201
  Transmission Date: 20140127
  Serious: Yes (Hospitalization)
  Sender: FDA-Public Use
  Company Number: JP-PFIZER INC-2013038932

PATIENT
  Sex: Male

DRUGS (4)
  1. ALDACTONE A [Suspect]
     Route: 048
  2. WARFARIN [Suspect]
     Route: 048
  3. ARTIST [Suspect]
     Route: 048
  4. VASOLAN [Suspect]

REACTIONS (1)
  - Peripheral arterial occlusive disease [Unknown]
